FAERS Safety Report 12545509 (Version 1)
Quarter: 2016Q3

REPORT INFORMATION
  Report Type: Spontaneous
  Country: US (occurrence: US)
  Receive Date: 20160711
  Receipt Date: 20160711
  Transmission Date: 20161109
  Serious: Yes (Other)
  Sender: FDA-Public Use
  Company Number: US-JNJFOC-20160703780

PATIENT

DRUGS (12)
  1. PROPOFOL. [Suspect]
     Active Substance: PROPOFOL
     Indication: ANAESTHESIA
     Dosage: 30-50 MCG/KG/MIN
     Route: 042
  2. LIDOCAINE. [Suspect]
     Active Substance: LIDOCAINE
     Indication: ANAESTHESIA
     Route: 042
  3. TRAMADOL. [Suspect]
     Active Substance: TRAMADOL
     Indication: ANAESTHESIA
     Dosage: WITHIN 2 HOUR OF ANESTHESIA INDUCTION
     Route: 042
  4. PROPOFOL. [Suspect]
     Active Substance: PROPOFOL
     Indication: ANAESTHESIA
     Dosage: 0.2-0.5 MG/KG UNTIL LOSS OF RESPONSE TO VERBAL STIMULI
     Route: 042
  5. HYDROMORPHONE [Suspect]
     Active Substance: HYDROMORPHONE
     Indication: PRODUCT USED FOR UNKNOWN INDICATION
     Dosage: 0.6-1 MG (INITIAL BOLUS)
     Route: 008
  6. CELECOXIB. [Suspect]
     Active Substance: CELECOXIB
     Indication: ANAESTHESIA
     Dosage: 300-400 MG, WITHIN 2 HOUR OF ANESTHESIA INDUCTION
     Route: 042
  7. PROPOFOL. [Suspect]
     Active Substance: PROPOFOL
     Indication: ANAESTHESIA
     Dosage: INCREASED TO 50-150 MCG/KG/MIN
     Route: 042
  8. HYDROMORPHONE [Suspect]
     Active Substance: HYDROMORPHONE
     Indication: PRODUCT USED FOR UNKNOWN INDICATION
     Route: 008
  9. PREGABALIN. [Suspect]
     Active Substance: PREGABALIN
     Indication: ANAESTHESIA
     Dosage: 75-150 MG, WITHIN 2 HOUR OF ANESTHESIA INDUCTION
     Route: 042
  10. LIDOCAINE. [Suspect]
     Active Substance: LIDOCAINE
     Indication: ANAESTHESIA
     Dosage: INCREASED TO 1.5 MG/KG CONTINUED UNTIL LOSS OF RESPONSE TO VERBAL STIMULI
     Route: 042
  11. DEXMEDETOMIDINE. [Suspect]
     Active Substance: DEXMEDETOMIDINE
     Indication: ANAESTHESIA
     Dosage: 0.3 MCG/KG/HOUR
     Route: 042
  12. KETAMINE [Suspect]
     Active Substance: KETAMINE
     Indication: ANAESTHESIA
     Dosage: CONTINUED UNTIL LOSS OF RESPONSE TO VERBAL STIMULI
     Route: 042

REACTIONS (19)
  - Arrhythmia [Unknown]
  - Pulmonary oedema [Unknown]
  - Wound infection [Unknown]
  - Ileus [Unknown]
  - Anastomotic leak [Unknown]
  - Multiple organ dysfunction syndrome [Unknown]
  - Deep vein thrombosis [Unknown]
  - Blood disorder [Unknown]
  - Diarrhoea [Unknown]
  - Renal failure [Unknown]
  - Enterocutaneous fistula [Unknown]
  - Respiratory failure [Unknown]
  - Urinary tract infection [Unknown]
  - Septic shock [Unknown]
  - Pneumonia [Unknown]
  - Vomiting [Unknown]
  - Delirium [Unknown]
  - Pulmonary embolism [Unknown]
  - Sepsis [Unknown]
